FAERS Safety Report 21173298 (Version 2)
Quarter: 2022Q3

REPORT INFORMATION
  Report Type: Spontaneous
  Country: US (occurrence: US)
  Receive Date: 20220804
  Receipt Date: 20220820
  Transmission Date: 20221026
  Serious: Yes (Hospitalization)
  Sender: FDA-Public Use
  Company Number: US-TEVA-2022-US-2060100

PATIENT
  Age: 32 Year
  Sex: Female

DRUGS (1)
  1. TESTOSTERONE [Suspect]
     Active Substance: TESTOSTERONE
     Indication: Transgender hormonal therapy
     Route: 065

REACTIONS (1)
  - Endometrial hyperplasia [Unknown]
